FAERS Safety Report 24189392 (Version 1)
Quarter: 2024Q3

REPORT INFORMATION
  Report Type: Spontaneous
  Country: US (occurrence: US)
  Receive Date: 20240808
  Receipt Date: 20240808
  Transmission Date: 20241017
  Serious: Yes (Other)
  Sender: AVADEL CNS PHARMA
  Company Number: US-AVADEL CNS PHARMACEUTICALS, LLC-2024AVA01300

PATIENT
  Sex: Female
  Weight: 81.633 kg

DRUGS (8)
  1. LUMRYZ [Suspect]
     Active Substance: SODIUM OXYBATE
     Indication: Narcolepsy
     Dosage: 9 G, ONCE NIGHTLY AT BEDTIME
     Dates: start: 202403
  2. RIZATRIPTAN [Concomitant]
     Active Substance: RIZATRIPTAN
  3. DULOXETINE HYDROCHLORIDE [Concomitant]
     Active Substance: DULOXETINE HYDROCHLORIDE
  4. NORETHINDRONE [Concomitant]
     Active Substance: NORETHINDRONE
  5. TOPAMAX [Concomitant]
     Active Substance: TOPIRAMATE
  6. ABILIFY [Concomitant]
     Active Substance: ARIPIPRAZOLE
  7. WAKIX [Concomitant]
     Active Substance: PITOLISANT HYDROCHLORIDE
  8. SUNOSI [Concomitant]
     Active Substance: SOLRIAMFETOL

REACTIONS (1)
  - Ligament rupture [Not Recovered/Not Resolved]

NARRATIVE: CASE EVENT DATE: 20240101
